FAERS Safety Report 4551754-5 (Version None)
Quarter: 2005Q1

REPORT INFORMATION
  Report Type: 
  Country: None (occurrence: None)
  Receive Date: 20050113
  Receipt Date: 20050106
  Transmission Date: 20050727
  Serious: Yes (Hospitalization)
  Sender: FDA-Public Use
  Company Number: 106

PATIENT
  Age: 61 Year
  Sex: Female

DRUGS (8)
  1. MELPHALAN [Suspect]
     Indication: MULTIPLE MYELOMA
     Route: 042
     Dates: start: 20040817
  2. THALIDOMIDE [Suspect]
     Indication: MULTIPLE MYELOMA
     Route: 048
     Dates: start: 20040323
  3. BORTEZOMIB [Concomitant]
  4. DEXAMETHASONE [Concomitant]
  5. CISPLATIN [Concomitant]
  6. ADRIAMYCIN PFS [Concomitant]
  7. CYCLOPHOSPHAMIDE [Concomitant]
  8. ETOPOSIDE [Concomitant]

REACTIONS (6)
  - COUGH [None]
  - DYSPNOEA [None]
  - PLEURAL EFFUSION [None]
  - PNEUMONIA [None]
  - PYREXIA [None]
  - STEM CELL TRANSPLANT [None]
